FAERS Safety Report 25523862 (Version 1)
Quarter: 2025Q3

REPORT INFORMATION
  Report Type: Spontaneous
  Country: EU (occurrence: EU)
  Receive Date: 20250707
  Receipt Date: 20250707
  Transmission Date: 20251020
  Serious: Yes (Life-Threatening, Hospitalization)
  Sender: MYLAN
  Company Number: EU-MYLANLABS-2025M1054612

PATIENT
  Age: 31 Year
  Sex: Male

DRUGS (1)
  1. DIMETHYL FUMARATE [Suspect]
     Active Substance: DIMETHYL FUMARATE
     Indication: Relapsing-remitting multiple sclerosis

REACTIONS (7)
  - Varicella zoster virus infection [Unknown]
  - Angiopathy [Unknown]
  - Brain herniation [Unknown]
  - Stupor [Unknown]
  - Hemiparesis [Not Recovered/Not Resolved]
  - Hemianopia [Unknown]
  - Somnolence [Unknown]
